FAERS Safety Report 5920824-9 (Version None)
Quarter: 2008Q4

REPORT INFORMATION
  Report Type: 
  Country: None (occurrence: None)
  Receive Date: 20081016
  Receipt Date: 20081009
  Transmission Date: 20090506
  Serious: Yes (Hospitalization)
  Sender: FDA-Public Use
  Company Number: US-MERCK-0810USA01917

PATIENT
  Age: 53 Year
  Sex: Female

DRUGS (3)
  1. JANUMET [Suspect]
     Indication: INSULIN-REQUIRING TYPE 2 DIABETES MELLITUS
     Route: 065
     Dates: start: 20080915
  2. NOVOLOG [Suspect]
     Indication: INSULIN-REQUIRING TYPE 2 DIABETES MELLITUS
     Route: 065
     Dates: start: 20080915
  3. HUMULIN 70/30 [Concomitant]
     Route: 065
     Dates: start: 20020101

REACTIONS (4)
  - BLOOD GLUCOSE INCREASED [None]
  - CHEST PAIN [None]
  - HYPOGLYCAEMIA [None]
  - PALPITATIONS [None]
